FAERS Safety Report 9885725 (Version 2)
Quarter: 2014Q1

REPORT INFORMATION
  Report Type: Report from Study
  Country: US (occurrence: US)
  Receive Date: 20140210
  Receipt Date: 20140228
  Transmission Date: 20141002
  Serious: Yes (Death, Other)
  Sender: FDA-Public Use
  Company Number: PHEH2014US002627

PATIENT
  Sex: Female
  Weight: 111 kg

DRUGS (6)
  1. GLEEVEC [Suspect]
     Indication: MYELOID LEUKAEMIA
     Dosage: 400 MG, EOD
     Route: 048
     Dates: start: 20120216
  2. IBRUTINIB [Suspect]
     Indication: CHRONIC LYMPHOCYTIC LEUKAEMIA
     Dosage: UNK UKN, UNK
  3. ADVAIR [Concomitant]
     Dosage: UNK UKN, UNK
  4. DEXILANT [Concomitant]
     Dosage: UNK UKN, UNK
  5. ALLOPURINOL [Concomitant]
     Dosage: UNK UKN, UNK
  6. PREDNISONE [Concomitant]
     Dosage: UNK UKN, UNK

REACTIONS (2)
  - Death [Fatal]
  - Leukaemia recurrent [Unknown]
